FAERS Safety Report 18014197 (Version 1)
Quarter: 2020Q3

REPORT INFORMATION
  Report Type: Spontaneous
  Country: US (occurrence: US)
  Receive Date: 20200713
  Receipt Date: 20200713
  Transmission Date: 20201103
  Serious: Yes (Other)
  Sender: FDA-Public Use
  Company Number: US-ACELLA PHARMACEUTICALS, LLC-2087324

PATIENT
  Sex: Female

DRUGS (1)
  1. NP THYROID [Suspect]
     Active Substance: LEVOTHYROXINE\LIOTHYRONINE
     Indication: PRODUCT USED FOR UNKNOWN INDICATION
     Route: 065

REACTIONS (21)
  - Impaired driving ability [Unknown]
  - Temperature intolerance [Unknown]
  - Emotional distress [Unknown]
  - Muscle tightness [Unknown]
  - Muscular weakness [Unknown]
  - Hormone level abnormal [Unknown]
  - Hysterectomy [Unknown]
  - Anxiety [Unknown]
  - Polyp [Unknown]
  - Depression [Unknown]
  - Bone disorder [Unknown]
  - Arthropathy [Unknown]
  - Impaired quality of life [Unknown]
  - Mood altered [Unknown]
  - Fatigue [Unknown]
  - Weight abnormal [Unknown]
  - Alopecia [Unknown]
  - Endometriosis [Unknown]
  - Heart rate increased [Unknown]
  - Premenstrual syndrome [Unknown]
  - Menstrual disorder [Unknown]
